FAERS Safety Report 20724592 (Version 1)
Quarter: 2022Q2

REPORT INFORMATION
  Report Type: Spontaneous
  Country: HU (occurrence: HU)
  Receive Date: 20220419
  Receipt Date: 20220419
  Transmission Date: 20220721
  Serious: Yes (Other)
  Sender: FDA-Public Use
  Company Number: None

PATIENT
  Age: 73 Year
  Sex: Male
  Weight: 100 kg

DRUGS (14)
  1. AMOXICILLIN\CLAVULANATE POTASSIUM [Suspect]
     Active Substance: AMOXICILLIN\CLAVULANATE POTASSIUM
     Indication: Product used for unknown indication
     Dosage: 1 DOSAGE FORM, Q12H
     Route: 048
     Dates: start: 20220316, end: 20220329
  2. SALOFALK [Concomitant]
     Indication: Colitis
     Dosage: 3 G
     Route: 065
     Dates: start: 20160412
  3. METFORMIN HYDROCHLORIDE\VILDAGLIPTIN [Concomitant]
     Active Substance: METFORMIN HYDROCHLORIDE\VILDAGLIPTIN
     Indication: Diabetes mellitus
     Dosage: UNK
     Route: 065
     Dates: start: 20120916
  4. GORDIUS [Concomitant]
     Indication: Hypoaesthesia
     Dosage: 400 MG
     Route: 065
     Dates: start: 20210815
  5. .ALPHA.-LIPOIC ACID [Concomitant]
     Active Substance: .ALPHA.-LIPOIC ACID
     Indication: Diabetes mellitus
     Dosage: 600 MG
     Route: 065
     Dates: start: 20121017
  6. LAVESTRA [Concomitant]
     Indication: Cardiac disorder
     Dosage: 50 MG
     Route: 065
     Dates: start: 20120918
  7. FAMOTIDINE [Concomitant]
     Active Substance: FAMOTIDINE
     Indication: Prophylaxis against gastrointestinal ulcer
     Dosage: 20 MG
     Route: 065
     Dates: start: 20220216
  8. LYRICA [Concomitant]
     Active Substance: PREGABALIN
     Indication: Diabetes mellitus
     Dosage: 150 MG
     Route: 065
     Dates: start: 20140913
  9. NORVASC [Concomitant]
     Active Substance: AMLODIPINE BESYLATE
     Indication: Hypertension
     Dosage: 5 MG
     Route: 065
     Dates: start: 20121118
  10. TRIMETAZIDINE DIHYDROCHLORIDE [Concomitant]
     Active Substance: TRIMETAZIDINE DIHYDROCHLORIDE
     Indication: Cardiac disorder
     Dosage: 35 MG
     Route: 065
     Dates: start: 20211117
  11. TAMSULOSIN HYDROCHLORIDE [Concomitant]
     Active Substance: TAMSULOSIN HYDROCHLORIDE
     Indication: Urogenital disorder
     Dosage: 0.4 MG
     Route: 065
     Dates: start: 20170813
  12. NEBIVOLOL [Concomitant]
     Active Substance: NEBIVOLOL
     Indication: Hypertension
     Dosage: 5 MG
     Route: 065
     Dates: start: 20121017
  13. XARELTO [Concomitant]
     Active Substance: RIVAROXABAN
     Indication: Cardiac disorder
     Dosage: 20 MG
     Route: 065
     Dates: start: 20201121
  14. GLICLAZIDE [Concomitant]
     Active Substance: GLICLAZIDE
     Indication: Diabetes mellitus
     Dosage: 30 MG
     Route: 065
     Dates: start: 20121017

REACTIONS (8)
  - Papule [Recovering/Resolving]
  - Hyperhidrosis [Recovering/Resolving]
  - Swelling face [Recovering/Resolving]
  - Lip swelling [Recovering/Resolving]
  - Lymphadenopathy [Recovering/Resolving]
  - Rash pruritic [Recovering/Resolving]
  - Furuncle [Recovering/Resolving]
  - Pyrexia [Recovering/Resolving]

NARRATIVE: CASE EVENT DATE: 20220329
